FAERS Safety Report 25510193 (Version 1)
Quarter: 2025Q3

REPORT INFORMATION
  Report Type: Spontaneous
  Country: US (occurrence: US)
  Receive Date: 20250703
  Receipt Date: 20250703
  Transmission Date: 20251021
  Serious: No
  Sender: RADIUS PHARM
  Company Number: US-RADIUS HEALTH INC.-2024US002917

PATIENT
  Age: 62 Year
  Sex: Female

DRUGS (1)
  1. TYMLOS [Suspect]
     Active Substance: ABALOPARATIDE
     Indication: Senile osteoporosis
     Route: 058
     Dates: start: 20240411, end: 20240426

REACTIONS (9)
  - Heart rate increased [Not Recovered/Not Resolved]
  - Headache [Recovering/Resolving]
  - Bone pain [Recovered/Resolved]
  - Pain in extremity [Recovered/Resolved]
  - Pain in jaw [Recovering/Resolving]
  - Fatigue [Not Recovered/Not Resolved]
  - Feeling jittery [Not Recovered/Not Resolved]
  - Skin lesion [Recovering/Resolving]
  - Blood pressure increased [Unknown]

NARRATIVE: CASE EVENT DATE: 20240401
